FAERS Safety Report 26044064 (Version 2)
Quarter: 2025Q4

REPORT INFORMATION
  Report Type: Spontaneous
  Country: EU (occurrence: EU)
  Receive Date: 20251114
  Receipt Date: 20251208
  Transmission Date: 20260117
  Serious: Yes (Hospitalization, Other)
  Sender: NOVARTIS
  Company Number: EU-002147023-NVSC2025DE172502

PATIENT
  Sex: Male
  Weight: 102 kg

DRUGS (2)
  1. COSENTYX [Suspect]
     Active Substance: SECUKINUMAB
     Indication: Psoriatic arthropathy
     Dosage: 300 MG, QMO (2X150 MG)
     Route: 058
     Dates: start: 20160816, end: 20251030
  2. Metacin [Concomitant]
     Indication: Psoriatic arthropathy
     Dosage: 500 MG
     Route: 048
     Dates: start: 202505

REACTIONS (1)
  - Prostatic abscess [Recovered/Resolved]

NARRATIVE: CASE EVENT DATE: 20251016
